FAERS Safety Report 11078386 (Version 2)
Quarter: 2015Q2

REPORT INFORMATION
  Report Type: Spontaneous
  Country: US (occurrence: US)
  Receive Date: 20150430
  Receipt Date: 20150515
  Transmission Date: 20150821
  Serious: Yes (Other)
  Sender: FDA-Public Use
  Company Number: US-AMGEN-USASL2015039270

PATIENT
  Age: 50 Year
  Sex: Male

DRUGS (1)
  1. BLINCYTO [Suspect]
     Active Substance: BLINATUMOMAB
     Indication: LEUKAEMIA
     Dosage: 28 MUG, QD
     Route: 065
     Dates: start: 20150420

REACTIONS (10)
  - Blast cell count increased [Unknown]
  - Haemoglobin decreased [Unknown]
  - Drug ineffective [Unknown]
  - Pyrexia [Unknown]
  - Cytokine release syndrome [Unknown]
  - Neutropenia [Unknown]
  - Platelet count decreased [Unknown]
  - Blast cell count decreased [Unknown]
  - Infection [Unknown]
  - Asthenia [Unknown]

NARRATIVE: CASE EVENT DATE: 20150421
